FAERS Safety Report 10102252 (Version 3)
Quarter: 2014Q2

REPORT INFORMATION
  Report Type: Spontaneous
  Country: US (occurrence: US)
  Receive Date: 20140424
  Receipt Date: 20140530
  Transmission Date: 20141212
  Serious: No
  Sender: FDA-Public Use
  Company Number: US-PFIZER INC-2014111994

PATIENT
  Age: 82 Year
  Sex: Female

DRUGS (2)
  1. PREMARIN [Suspect]
     Indication: VULVOVAGINAL BURNING SENSATION
     Dosage: 0.5 G, UNK
     Route: 067
     Dates: end: 20140414
  2. PREMARIN [Suspect]
     Dosage: UNK
     Route: 067

REACTIONS (11)
  - Nausea [Recovered/Resolved]
  - Headache [Recovered/Resolved]
  - Abdominal distension [Recovering/Resolving]
  - Breast swelling [Recovering/Resolving]
  - Insomnia [Recovering/Resolving]
  - Restlessness [Recovering/Resolving]
  - Drug intolerance [Unknown]
  - Pain [Recovering/Resolving]
  - Drug ineffective for unapproved indication [Recovered/Resolved]
  - Aggression [Unknown]
  - Mental disorder [Recovered/Resolved]
